FAERS Safety Report 7130851-4 (Version None)
Quarter: 2010Q4

REPORT INFORMATION
  Report Type: 
  Country: None (occurrence: None)
  Receive Date: 20101201
  Receipt Date: 20101123
  Transmission Date: 20110411
  Serious: Yes (Death)
  Sender: FDA-Public Use
  Company Number: US-ROCHE-744066

PATIENT
  Sex: Female

DRUGS (2)
  1. ISOTRETINOIN [Suspect]
     Dosage: DISPENSED ISOTRETINOIN 40 MG CAPSULE ON 30 OCT 2009
     Route: 065
     Dates: start: 20091030
  2. CLARAVIS [Suspect]
     Dosage: DISPENSED ISOTRETINOIN 40 MG CAPSULE ON 23 DEC 2009, 40MG ON 27 FEB 2010 AND 30 MG ON 27 AUG 2010
     Route: 065
     Dates: start: 20091223

REACTIONS (1)
  - DEATH [None]
